FAERS Safety Report 6995266-8 (Version None)
Quarter: 2010Q3

REPORT INFORMATION
  Report Type: 
  Country: None (occurrence: None)
  Receive Date: 20100915
  Receipt Date: 20100831
  Transmission Date: 20110219
  Serious: Yes (Other)
  Sender: FDA-Public Use
  Company Number: AUR-APL-2010-02238

PATIENT
  Sex: Male

DRUGS (1)
  1. METFORMIN [Suspect]
     Indication: DIABETES MELLITUS

REACTIONS (7)
  - CARDIAC DISORDER [None]
  - CHEST PAIN [None]
  - CORONARY ARTERIAL STENT INSERTION [None]
  - FATIGUE [None]
  - HAEMATOCHEZIA [None]
  - MALAISE [None]
  - MYOCARDIAL INFARCTION [None]
